FAERS Safety Report 9392980 (Version 3)
Quarter: 2013Q3

REPORT INFORMATION
  Report Type: Report from Study
  Country: US (occurrence: US)
  Receive Date: 20130710
  Receipt Date: 20130730
  Transmission Date: 20140515
  Serious: Yes (Life-Threatening, Hospitalization, Other)
  Sender: FDA-Public Use
  Company Number: US-ASTELLAS-2013EU003313

PATIENT
  Age: 59 Year
  Sex: Female
  Weight: 90.3 kg

DRUGS (68)
  1. BLINDED FIDAXOMICIN [Suspect]
     Indication: PROPHYLAXIS
     Dosage: 1 TABLET, QD
     Route: 048
     Dates: start: 20130321, end: 20130327
  2. MYCAMINE [Suspect]
     Indication: ANTIFUNGAL PROPHYLAXIS
     Dosage: 100 MG, QD
     Route: 042
     Dates: start: 20130319
  3. PROGRAF [Suspect]
     Indication: PROPHYLAXIS AGAINST GRAFT VERSUS HOST DISEASE
     Dosage: 0.7 MG, UID/QD
     Route: 042
     Dates: start: 20130329
  4. ACETAMINOPHEN [Concomitant]
     Indication: PREMEDICATION
     Dosage: 650 MG, PRN
     Route: 042
     Dates: start: 20130228
  5. DIPHENHYDRAMINE [Concomitant]
     Indication: PREMEDICATION
     Dosage: 25-50 ML, PRN
     Route: 042
     Dates: start: 20130228
  6. HYDROCORTISONE [Concomitant]
     Indication: PREMEDICATION
     Dosage: 25 MG, PRN
     Route: 042
     Dates: start: 20130314
  7. PROPOFOL [Concomitant]
     Indication: SEDATION
     Dosage: 200 MG, PRN
     Route: 042
     Dates: start: 20130318, end: 20130318
  8. VALSARTAN [Concomitant]
     Indication: HYPERTENSION
     Dosage: 160 MG, PRN
     Route: 048
     Dates: start: 2011
  9. FUROSEMIDE [Concomitant]
     Indication: FLUID REPLACEMENT
     Dosage: 20-40 MG, PRN
     Route: 042
     Dates: start: 20130320
  10. FUROSEMIDE [Concomitant]
     Indication: FLUID REPLACEMENT
  11. DEXAMETHASONE SODIUM PHOSPHATE [Concomitant]
     Indication: PREMEDICATION
     Dosage: 4-10 MG, PRN
     Route: 042
     Dates: start: 20130320
  12. INSULIN LISPRO [Concomitant]
     Indication: DIABETES MELLITUS
     Dosage: SLIDING SCALE U, PRN
     Route: 058
     Dates: start: 20130320
  13. LEVOFLOXACIN [Concomitant]
     Indication: ANTIBIOTIC PROPHYLAXIS
     Dosage: 250-500 MG, QD
     Route: 048
     Dates: start: 20130320
  14. MELPHALAN [Concomitant]
     Dosage: 192 MG, SINGLE
     Route: 042
     Dates: start: 20130320, end: 20130320
  15. RALOXIFENE [Concomitant]
     Indication: OSTEOARTHRITIS
     Dosage: 60 MG, QD
     Route: 048
     Dates: start: 2011
  16. PRAVASTATIN SODIUM [Concomitant]
     Indication: HYPERLIPIDAEMIA
     Dosage: 80 MG, QD
     Route: 048
     Dates: start: 2011
  17. PANTOPRAZOLE SODIUM [Concomitant]
     Indication: GASTROOESOPHAGEAL REFLUX PROPHYLAXIS
     Dosage: 40 MG, QD
     Route: 048
     Dates: start: 20130320
  18. PANTOPRAZOLE SODIUM [Concomitant]
     Indication: GASTROOESOPHAGEAL REFLUX DISEASE
     Dosage: 40 MG, PRN
     Route: 042
     Dates: start: 20130328, end: 20130330
  19. MINOCYCLINE [Concomitant]
     Indication: ANTIBIOTIC PROPHYLAXIS
     Dosage: 100 MG, QD
     Route: 048
     Dates: start: 20130320
  20. LEVOTHYROXINE [Concomitant]
     Indication: HYPOTHYROIDISM
     Dosage: 200 MCG, QD
     Route: 048
     Dates: start: 2011
  21. LEVOTHYROXINE [Concomitant]
     Dosage: 100 MCG, QD
     Route: 042
     Dates: start: 20130328
  22. INSULIN GLARGINE [Concomitant]
     Indication: DIABETES MELLITUS
     Dosage: 30 U, QD
     Route: 058
     Dates: start: 2011
  23. HYDRALAZINE [Concomitant]
     Indication: HYPERTENSION
     Dosage: 50 MG, QD
     Route: 048
     Dates: start: 2011
  24. HYDRALAZINE [Concomitant]
     Dosage: 10-20 MG, PRN
     Route: 042
     Dates: start: 20130321
  25. FLUOXETINE [Concomitant]
     Indication: DEPRESSION
     Dosage: 20 MG, QD
     Route: 048
     Dates: start: 2011
  26. CLOPIDOGREL BISULFATE [Concomitant]
     Indication: CORONARY ARTERY DISEASE
     Dosage: 75 MG, QD
     Route: 048
     Dates: start: 2011
  27. CARVEDILOL [Concomitant]
     Indication: HYPERTENSION
     Dosage: 25 MG, QD
     Route: 048
     Dates: start: 2011
  28. ASPIRIN [Concomitant]
     Indication: CORONARY ARTERY DISEASE
     Dosage: 81 MG, QD
     Route: 048
     Dates: start: 20121106
  29. FLUDARABINE [Concomitant]
     Dosage: 71 MG, QD
     Route: 042
     Dates: start: 20130320, end: 20130324
  30. GUAIFENESIN [Concomitant]
     Indication: COUGH
     Dosage: 200 MG, PRN
     Route: 048
     Dates: start: 20130323
  31. INSULIN REGULAR [Concomitant]
     Indication: DIABETES MELLITUS
     Dosage: SLIDING SCALE U, PRN
     Route: 058
     Dates: start: 20130324
  32. VANCOMYCIN [Concomitant]
     Indication: ANTIBIOTIC PROPHYLAXIS
     Dosage: 750 MG, Q12H
     Route: 042
     Dates: start: 20130324
  33. CEFEPIME [Concomitant]
     Indication: ANTIBIOTIC PROPHYLAXIS
     Dosage: 2 G, Q8H
     Route: 042
     Dates: start: 20130324
  34. PHYTONADIONE [Concomitant]
     Indication: HAEMORRHAGE PROPHYLAXIS
     Dosage: 10 MG, QD
     Route: 048
     Dates: start: 20130325
  35. VALACYCLOVIR [Concomitant]
     Indication: ANTIVIRAL PROPHYLAXIS
     Dosage: 500 MG, SINGLE
     Route: 048
     Dates: start: 20130325
  36. CYCLOPHOSPHAMIDE [Concomitant]
     Dosage: 3560 MG, QD
     Route: 042
     Dates: start: 20130329, end: 20130330
  37. ACYCLOVIR SODIUM [Concomitant]
     Indication: ANTIFUNGAL PROPHYLAXIS
     Dosage: 475-650 MG, QD
     Route: 042
     Dates: start: 20130328
  38. KEPPRA [Concomitant]
     Dosage: UNK
     Route: 065
  39. KEPPRA [Concomitant]
     Dosage: UNK
  40. MAGNESIUM SULFATE [Concomitant]
     Indication: PROPHYLAXIS
     Dosage: 4-16 MEQ, PRN
     Route: 042
     Dates: start: 20130319
  41. MYCOPHENOLATE MOFETIL [Concomitant]
     Indication: PROPHYLAXIS AGAINST GRAFT VERSUS HOST DISEASE
     Dosage: 1000 MG, Q8H
     Route: 042
     Dates: start: 20130329
  42. VORICONAZOLE [Concomitant]
     Indication: ANTIFUNGAL PROPHYLAXIS
     Dosage: 200 MG, Q12H
     Route: 042
     Dates: start: 20130329
  43. ZOLPIDEM [Concomitant]
     Indication: INSOMNIA
     Dosage: 5 MG, PRN
     Route: 048
     Dates: start: 20130319
  44. SENNOSIDES DOCUSATE SODIUM [Concomitant]
     Indication: CONSTIPATION PROPHYLAXIS
     Dosage: 1-2 TABLETS, PRN
     Route: 048
     Dates: start: 20130319
  45. CHLORHEXIDINE GLUCONATE [Concomitant]
     Indication: PROPHYLAXIS
     Dosage: 15 ML, PRN
     Route: 048
     Dates: start: 20130319
  46. PIPERACILLIN/TAZOBACTAM [Concomitant]
     Indication: ANTIBIOTIC PROPHYLAXIS
     Dosage: 3.375 G, Q6H
     Route: 042
     Dates: start: 20130329
  47. CLONIDINE [Concomitant]
     Indication: HYPERTENSION
     Dosage: 0.1-0.2 MG, Q7DAY
     Route: 062
     Dates: start: 20130329
  48. METOPROLOL TARTRATE [Concomitant]
     Indication: HYPERTENSION
     Dosage: 5-10 MG, Q6H
     Route: 042
     Dates: start: 20130328
  49. LEVETIRACETAM [Concomitant]
     Indication: MENTAL STATUS CHANGES
     Dosage: 500-750 MG, Q12H
     Route: 042
     Dates: start: 20130328, end: 20130411
  50. MESNA [Concomitant]
     Indication: MENTAL STATUS CHANGES
     Dosage: 712 MG, Q4H
     Route: 042
     Dates: start: 20130329, end: 20130329
  51. SODIUM BICARBONATE [Concomitant]
     Indication: METABOLIC ACIDOSIS
     Dosage: 50-150 MEQ, PRN
     Route: 042
     Dates: start: 20130319
  52. POTASSIUM CHLORIDE [Concomitant]
     Indication: HYPOKALAEMIA
     Dosage: 10-40 MEQ, PRN
     Route: 042
     Dates: start: 20130319
  53. WHITE PETROLATUM [Concomitant]
     Indication: PROPHYLAXIS
     Dosage: 1 APPLICATION, PRN
     Route: 061
     Dates: start: 20130319
  54. SODIUM CHLORIDE [Concomitant]
     Dosage: 1000 ML, SINGLE (CONTINUOUS)
     Route: 042
     Dates: start: 20130319
  55. ONDANSETRON [Concomitant]
     Indication: NAUSEA
     Dosage: 4-8 MG, PRN
     Route: 065
     Dates: start: 20130318
  56. LIDOCAINE [Concomitant]
     Indication: LOCAL ANAESTHESIA
     Dosage: 0.5-2.0 ML, PRN
     Route: 058
     Dates: start: 20130318, end: 20130318
  57. PROMETHAZINE [Concomitant]
     Indication: NAUSEA
     Dosage: 12.5 MG, PRN
     Route: 042
     Dates: start: 20130319
  58. LORAZEPAM [Concomitant]
     Indication: ANXIETY
     Dosage: 1 MG, PRN
     Route: 048
     Dates: start: 20130319
  59. ZINC OXIDE [Concomitant]
     Indication: PROPHYLAXIS
     Dosage: 1 APPLICATION, PRN
     Route: 061
     Dates: start: 20130319
  60. DEXTROSE [Concomitant]
     Indication: HYPOGLYCAEMIA
     Dosage: 12.5 G, PRN
     Route: 042
     Dates: start: 20130319
  61. DEXTROSE [Concomitant]
     Dosage: 40 %, PRN
     Route: 048
     Dates: start: 20130319
  62. DEXTROSE [Concomitant]
     Dosage: 250-1000 ML, PRN
     Route: 042
     Dates: start: 20130326
  63. ARTIFICIAL TEARS [Concomitant]
     Indication: PROPHYLAXIS
     Dosage: 1 APPLICATION, PRN
     Route: 047
     Dates: start: 20130321
  64. LOPERAMIDE [Concomitant]
     Indication: DIARRHOEA
     Dosage: 2-4 MG, PRN
     Route: 048
     Dates: start: 20130319
  65. MAALOX [Concomitant]
     Indication: PROPHYLAXIS
     Dosage: 15-30 ML, PRN
     Route: 048
     Dates: start: 20130319
  66. OXYCODONE [Concomitant]
     Indication: PAIN
     Dosage: 2.5 MG, PRN
     Route: 048
     Dates: start: 20130319
  67. SODIUM BICARBONATE W/SODIUM CHLORIDE [Concomitant]
     Indication: PROPHYLAXIS
     Dosage: 15 ML, PRN
     Route: 048
     Dates: start: 20130319
  68. SODIUM PHOSPHATE [Concomitant]
     Indication: HYPOPHOSPHATAEMIA
     Dosage: 15-30 MMOL, PRN
     Route: 042
     Dates: start: 20130329

REACTIONS (1)
  - Respiratory failure [Recovered/Resolved]
